FAERS Safety Report 5949784-1 (Version None)
Quarter: 2008Q4

REPORT INFORMATION
  Report Type: 
  Country: None (occurrence: None)
  Receive Date: 20081112
  Receipt Date: 20081107
  Transmission Date: 20090506
  Serious: Yes (Other)
  Sender: FDA-Public Use
  Company Number: US-ASTRAZENECA-2008UW24985

PATIENT
  Age: 691 Month
  Sex: Female
  Weight: 59.9 kg

DRUGS (9)
  1. ARIMIDEX [Suspect]
     Indication: BREAST CANCER
     Route: 048
     Dates: start: 20080101
  2. LISINOPRIL [Concomitant]
  3. LIPITOR [Concomitant]
  4. VITAMINS [Concomitant]
  5. PRILOSEC [Concomitant]
  6. SUDAFED 12 HOUR [Concomitant]
  7. CLARITIN [Concomitant]
  8. TYLENOL [Concomitant]
     Indication: HEADACHE
  9. EXCEDRIN [Concomitant]
     Indication: HEADACHE

REACTIONS (9)
  - ARTHRALGIA [None]
  - BLOOD CALCIUM INCREASED [None]
  - BLOOD IRON DECREASED [None]
  - HAEMOGLOBIN DECREASED [None]
  - HOT FLUSH [None]
  - ILL-DEFINED DISORDER [None]
  - NAUSEA [None]
  - NEPHROLITHIASIS [None]
  - VITAMIN D DECREASED [None]
